FAERS Safety Report 21925118 (Version 3)
Quarter: 2023Q1

REPORT INFORMATION
  Report Type: Spontaneous
  Country: JP (occurrence: JP)
  Receive Date: 20230130
  Receipt Date: 20230302
  Transmission Date: 20230418
  Serious: Yes (Other)
  Sender: FDA-Public Use
  Company Number: JP-BRISTOL-MYERS SQUIBB COMPANY-2023-013130

PATIENT
  Age: 79 Year
  Sex: Male

DRUGS (6)
  1. LENALIDOMIDE [Suspect]
     Active Substance: LENALIDOMIDE
     Indication: Plasma cell leukaemia
  2. DEXAMETHASONE [Suspect]
     Active Substance: DEXAMETHASONE
     Indication: Plasma cell leukaemia
  3. CARFILZOMIB [Suspect]
     Active Substance: CARFILZOMIB
     Indication: Plasma cell leukaemia
  4. CARFILZOMIB [Suspect]
     Active Substance: CARFILZOMIB
     Dosage: RESTARTED AT REDUCED DOSE
  5. ACYCLOVIR SODIUM [Concomitant]
     Active Substance: ACYCLOVIR SODIUM
     Indication: Product used for unknown indication
  6. ASPIRIN SODIUM [Concomitant]
     Active Substance: ASPIRIN SODIUM
     Indication: Product used for unknown indication

REACTIONS (3)
  - Thrombotic microangiopathy [Recovering/Resolving]
  - Bronchopulmonary aspergillosis [Unknown]
  - Dementia [Unknown]
